FAERS Safety Report 7347461-6 (Version None)
Quarter: 2011Q1

REPORT INFORMATION
  Report Type: 
  Country: None (occurrence: None)
  Receive Date: 20110311
  Receipt Date: 20110303
  Transmission Date: 20110831
  Serious: Yes (Other)
  Sender: FDA-Public Use
  Company Number: GB-PERRIGO-11GB001705

PATIENT
  Age: 9 Year
  Sex: Female
  Weight: 44 kg

DRUGS (2)
  1. CETIRIZINE HCL [Suspect]
     Indication: URTICARIA CHRONIC
     Dosage: 20 MG, BID
     Route: 048
  2. CETIRIZINE HCL [Suspect]
     Dosage: 20 MG, TID
     Route: 048

REACTIONS (1)
  - OVERDOSE [None]
